FAERS Safety Report 11089563 (Version 6)
Quarter: 2015Q4

REPORT INFORMATION
  Report Type: Report from Study
  Country: DE (occurrence: DE)
  Receive Date: 20150505
  Receipt Date: 20151008
  Transmission Date: 20160304
  Serious: Yes (Hospitalization)
  Sender: FDA-Public Use
  Company Number: DE-ROCHE-1568474

PATIENT
  Age: 75 Year
  Sex: Male
  Weight: 80 kg

DRUGS (5)
  1. OXALIPLATIN. [Suspect]
     Active Substance: OXALIPLATIN
     Indication: COLORECTAL CANCER METASTATIC
     Dosage: MOST RECENT DOSE 08/APR/2015
     Route: 042
     Dates: start: 20141222, end: 20150408
  2. IRINOTECAN [Suspect]
     Active Substance: IRINOTECAN
     Indication: COLORECTAL CANCER METASTATIC
     Dosage: MOST RECENT DOSE: 08/APR/2015
     Route: 042
     Dates: start: 20141222, end: 20150408
  3. FLUOROURACIL. [Suspect]
     Active Substance: FLUOROURACIL
     Indication: COLORECTAL CANCER METASTATIC
     Dosage: MOST RECENT DOSE 08/APR/2015
     Route: 042
     Dates: start: 20141222
  4. FOLINIC ACID [Suspect]
     Active Substance: LEUCOVORIN
     Indication: COLORECTAL CANCER METASTATIC
     Dosage: MOST RECENT DOSE 08/APR/2015
     Route: 042
     Dates: start: 20141222
  5. BEVACIZUMAB [Suspect]
     Active Substance: BEVACIZUMAB
     Indication: COLORECTAL CANCER METASTATIC
     Dosage: MOST RECENT DOSE 08/APR/2015 400 MG?DOSE- 5 MG/KG
     Route: 042
     Dates: start: 20141222, end: 20150408

REACTIONS (2)
  - Dizziness [Recovered/Resolved]
  - Fall [Unknown]

NARRATIVE: CASE EVENT DATE: 20150410
